FAERS Safety Report 15810549 (Version 1)
Quarter: 2019Q1

REPORT INFORMATION
  Report Type: Spontaneous
  Country: US (occurrence: US)
  Receive Date: 20190111
  Receipt Date: 20190111
  Transmission Date: 20190417
  Serious: No
  Sender: FDA-Public Use
  Company Number: US-ROCHE-2177070

PATIENT
  Age: 67 Year
  Sex: Male
  Weight: 90.8 kg

DRUGS (2)
  1. RITUXAN [Suspect]
     Active Substance: RITUXIMAB
     Dosage: 2ND DOSE
     Route: 042
     Dates: start: 20180820
  2. RITUXAN [Suspect]
     Active Substance: RITUXIMAB
     Indication: MULTIPLE SCLEROSIS
     Dosage: OVER A 6 HOUR PERIOD ;
     Route: 042
     Dates: start: 20180806

REACTIONS (17)
  - Flushing [Unknown]
  - Fatigue [Unknown]
  - Cognitive disorder [Unknown]
  - Abdominal pain upper [Not Recovered/Not Resolved]
  - Pyrexia [Unknown]
  - Muscular weakness [Not Recovered/Not Resolved]
  - Abdominal distension [Not Recovered/Not Resolved]
  - Gait disturbance [Unknown]
  - Asthenia [Unknown]
  - Coordination abnormal [Unknown]
  - Intentional product use issue [Unknown]
  - Peripheral swelling [Not Recovered/Not Resolved]
  - Contusion [Unknown]
  - Rhinorrhoea [Not Recovered/Not Resolved]
  - Fall [Unknown]
  - Off label use [Unknown]
  - Abdominal pain [Not Recovered/Not Resolved]

NARRATIVE: CASE EVENT DATE: 20180822
